FAERS Safety Report 8887031 (Version 2)
Quarter: 2014Q1

REPORT INFORMATION
  Report Type: Spontaneous
  Country: SE (occurrence: SE)
  Receive Date: 20121105
  Receipt Date: 20140228
  Transmission Date: 20141002
  Serious: Yes (Death, Hospitalization, Other)
  Sender: FDA-Public Use
  Company Number: SE-SANOFI-AVENTIS-2012SA028889

PATIENT
  Age: 84 Year
  Sex: Female

DRUGS (3)
  1. MULTAQ [Suspect]
     Indication: ATRIAL FIBRILLATION
     Route: 065
     Dates: start: 20120307, end: 20120318
  2. MULTAQ [Suspect]
     Indication: ATRIAL FLUTTER
     Route: 065
     Dates: start: 20120307, end: 20120318
  3. METOPROLOL [Concomitant]

REACTIONS (5)
  - Sudden death [Fatal]
  - Bradycardia [Unknown]
  - Blood pressure decreased [Unknown]
  - Renal failure acute [Recovered/Resolved]
  - Infection [Unknown]
